FAERS Safety Report 13323910 (Version 1)
Quarter: 2017Q1

REPORT INFORMATION
  Report Type: Report from Study
  Country: None (occurrence: GB)
  Receive Date: 20170310
  Receipt Date: 20170310
  Transmission Date: 20170428
  Serious: Yes (Other)
  Sender: FDA-Public Use
  Company Number: GB-ABBVIE-17P-167-1902469-00

PATIENT
  Sex: Male

DRUGS (2)
  1. TESTOGEL [Suspect]
     Active Substance: TESTOSTERONE
     Indication: PRODUCT USED FOR UNKNOWN INDICATION
     Route: 065
  2. TESTOGEL [Suspect]
     Active Substance: TESTOSTERONE
     Route: 065

REACTIONS (4)
  - Testis cancer [Unknown]
  - Mood altered [Unknown]
  - Blood testosterone decreased [Unknown]
  - Fatigue [Unknown]
